FAERS Safety Report 5418032-3 (Version None)
Quarter: 2007Q3

REPORT INFORMATION
  Report Type: 
  Country: None (occurrence: None)
  Receive Date: 20070817
  Receipt Date: 20070402
  Transmission Date: 20080115
  Serious: Yes (Disabling, Other)
  Sender: FDA-Public Use
  Company Number: A0645607A

PATIENT
  Age: 68 Year
  Sex: Male

DRUGS (2)
  1. BEXXAR [Suspect]
     Indication: NON-HODGKIN'S LYMPHOMA
     Route: 042
     Dates: start: 20010630, end: 20010630
  2. SSKI [Concomitant]

REACTIONS (3)
  - ANAEMIA [None]
  - ARTHRALGIA [None]
  - MYALGIA [None]
